FAERS Safety Report 5031266-5 (Version None)
Quarter: 2006Q2

REPORT INFORMATION
  Report Type: 
  Country: None (occurrence: None)
  Receive Date: 20060621
  Receipt Date: 20060314
  Transmission Date: 20061013
  Serious: Yes (Life-Threatening, Other)
  Sender: FDA-Public Use
  Company Number: JP-BRISTOL-MYERS SQUIBB COMPANY-13324306

PATIENT
  Age: 62 Year
  Sex: Female

DRUGS (10)
  1. GATIFLOXACIN [Suspect]
     Indication: MYCOBACTERIAL INFECTION
     Dosage: STOPPED ON 17-FEB-2006 AND TOOK 1 TABLET ON 06-MAR-2006
     Route: 048
     Dates: start: 20060216, end: 20060306
  2. THEO-DUR [Concomitant]
     Route: 048
     Dates: start: 20040824
  3. HOKUNALIN [Concomitant]
     Route: 062
     Dates: start: 20040824
  4. SEREVENT [Concomitant]
     Route: 055
     Dates: start: 20050901
  5. HUSCODE [Concomitant]
     Route: 048
     Dates: start: 20040921
  6. CLARITHROMYCIN [Concomitant]
     Route: 048
     Dates: start: 20060216, end: 20060217
  7. EBUTOL [Concomitant]
     Route: 048
     Dates: start: 20060216, end: 20060217
  8. AMLODIN [Concomitant]
     Route: 048
  9. ATENOLOL [Concomitant]
     Route: 048
  10. ISOSORBIDE MONONITRATE [Concomitant]
     Route: 048

REACTIONS (1)
  - HYPOGLYCAEMIA [None]
